FAERS Safety Report 7001032-X (Version None)
Quarter: 2010Q3

REPORT INFORMATION
  Report Type: 
  Country: None (occurrence: None)
  Receive Date: 20100920
  Receipt Date: 20071129
  Transmission Date: 20110219
  Serious: Yes (Hospitalization, Other)
  Sender: FDA-Public Use
  Company Number: US-ASTRAZENECA-2006UW27795

PATIENT
  Age: 16337 Day
  Sex: Male

DRUGS (28)
  1. SEROQUEL [Suspect]
     Indication: BIPOLAR I DISORDER
     Dosage: 200-800 MG
     Route: 048
     Dates: start: 20030328
  2. SEROQUEL [Suspect]
     Dosage: 200 MG, 400 MG
     Route: 048
     Dates: start: 20030902, end: 20071125
  3. LITHIUM [Concomitant]
  4. LITHIUM [Concomitant]
     Dosage: 600-1800 MG
     Dates: start: 19980622, end: 19990921
  5. LITHIUM [Concomitant]
     Dosage: 600-1800 MG
     Dates: start: 20050720
  6. XANAX [Concomitant]
     Dosage: 1-4 MG
     Dates: start: 19980622
  7. LEXAPRO [Concomitant]
     Dates: start: 20060223
  8. ZYPREXA [Concomitant]
     Dosage: 10, 20 MG
  9. ZYPREXA [Concomitant]
     Dates: start: 20060223
  10. CRESTOR [Concomitant]
  11. PROPRANOLOL/PROPANOLOL HCL [Concomitant]
     Dosage: 20 TWO TIMES A DAY
     Dates: start: 20060807
  12. METOPROLOL [Concomitant]
  13. PLAVIX [Concomitant]
     Dates: start: 20050720
  14. LIPITOR [Concomitant]
  15. RISPERDAL [Concomitant]
  16. NITROGLYCERIN [Concomitant]
  17. LAMICTAL [Concomitant]
     Dates: start: 20070717
  18. PROZAC [Concomitant]
     Dates: start: 20030101
  19. TRAZODONE HCL [Concomitant]
  20. METHYLPREDNISOLONE [Concomitant]
  21. MIRTAZAPINE [Concomitant]
  22. INSULIN [Concomitant]
     Indication: DIZZINESS
     Dates: start: 20060223
  23. LOVENOX [Concomitant]
     Indication: CHEST PAIN
     Dates: start: 20050720
  24. ASPIRIN [Concomitant]
     Dates: start: 20050720
  25. METFORMIN [Concomitant]
     Dosage: TWO TIMES A DAY
     Dates: start: 20060101, end: 20060223
  26. METFORMIN [Concomitant]
     Dosage: TWO TIMES A DAY
     Dates: start: 20060807
  27. AMBIEN [Concomitant]
     Dates: start: 20070717
  28. EFFEXOR [Concomitant]
     Dates: start: 20030328

REACTIONS (8)
  - BLOOD CHOLESTEROL INCREASED [None]
  - DEHYDRATION [None]
  - DIABETES MELLITUS [None]
  - DIABETES MELLITUS INADEQUATE CONTROL [None]
  - DIABETIC KETOACIDOSIS [None]
  - HYPERGLYCAEMIA [None]
  - OBESITY [None]
  - TYPE 2 DIABETES MELLITUS [None]
